FAERS Safety Report 15570975 (Version 3)
Quarter: 2018Q4

REPORT INFORMATION
  Report Type: Report from Study
  Country: GB (occurrence: GB)
  Receive Date: 20181031
  Receipt Date: 20181107
  Transmission Date: 20190205
  Serious: Yes (Other)
  Sender: FDA-Public Use
  Company Number: GB-EMD SERONO-9049316

PATIENT
  Age: 57 Year
  Sex: Female

DRUGS (2)
  1. REBIF [Suspect]
     Active Substance: INTERFERON BETA-1A
     Indication: MULTIPLE SCLEROSIS
     Dosage: 12MIU, PRE-FILLED SYRINGE
     Route: 058
     Dates: start: 20080507
  2. PARACETAMOL [Concomitant]
     Active Substance: ACETAMINOPHEN
     Indication: PRODUCT USED FOR UNKNOWN INDICATION

REACTIONS (16)
  - Feeling cold [Unknown]
  - Sleep disorder [Unknown]
  - Dermatitis acneiform [Not Recovered/Not Resolved]
  - Sepsis [Unknown]
  - Hypoaesthesia oral [Unknown]
  - Injection site erythema [Unknown]
  - Injection site discolouration [Unknown]
  - Rash pruritic [Not Recovered/Not Resolved]
  - Injection site warmth [Unknown]
  - Injection site pain [Unknown]
  - Cyst [Unknown]
  - Oral herpes [Recovered/Resolved]
  - Tremor [Unknown]
  - Injection site inflammation [Unknown]
  - Oropharyngeal pain [Unknown]
  - Injection site pruritus [Unknown]

NARRATIVE: CASE EVENT DATE: 2018
